FAERS Safety Report 24376339 (Version 1)
Quarter: 2024Q3

REPORT INFORMATION
  Report Type: Spontaneous
  Country: RO (occurrence: RO)
  Receive Date: 20240930
  Receipt Date: 20240930
  Transmission Date: 20241017
  Serious: Yes (Hospitalization)
  Sender: AUROBINDO
  Company Number: RO-FMX-PCT-09-24-LIT

PATIENT
  Age: 62 Year
  Sex: Female

DRUGS (36)
  1. OLANZAPINE [Suspect]
     Active Substance: OLANZAPINE
     Indication: Anhedonia
     Dosage: 5 MILLIGRAM
     Route: 065
  2. OLANZAPINE [Suspect]
     Active Substance: OLANZAPINE
     Indication: Dizziness
  3. OLANZAPINE [Suspect]
     Active Substance: OLANZAPINE
     Indication: Headache
  4. OLANZAPINE [Suspect]
     Active Substance: OLANZAPINE
     Indication: Anxiety
  5. OLANZAPINE [Suspect]
     Active Substance: OLANZAPINE
     Indication: Depression
  6. VORTIOXETINE [Suspect]
     Active Substance: VORTIOXETINE
     Indication: Anhedonia
     Dosage: 20 MILLIGRAM
     Route: 065
  7. VORTIOXETINE [Suspect]
     Active Substance: VORTIOXETINE
     Indication: Dizziness
  8. VORTIOXETINE [Suspect]
     Active Substance: VORTIOXETINE
     Indication: Headache
  9. VORTIOXETINE [Suspect]
     Active Substance: VORTIOXETINE
     Indication: Anxiety
  10. VORTIOXETINE [Suspect]
     Active Substance: VORTIOXETINE
     Indication: Depression
  11. VALPROIC ACID [Suspect]
     Active Substance: VALPROIC ACID
     Indication: Dizziness
     Dosage: 600 MILLIGRAM
     Route: 065
  12. VALPROIC ACID [Suspect]
     Active Substance: VALPROIC ACID
     Indication: Anxiety
  13. VALPROIC ACID [Suspect]
     Active Substance: VALPROIC ACID
     Indication: Anhedonia
  14. VALPROIC ACID [Suspect]
     Active Substance: VALPROIC ACID
     Indication: Headache
  15. VALPROIC ACID [Suspect]
     Active Substance: VALPROIC ACID
     Indication: Depression
  16. MIRTAZAPINE [Suspect]
     Active Substance: MIRTAZAPINE
     Indication: Anxiety
     Dosage: 15 MILLIGRAM
     Route: 065
  17. MIRTAZAPINE [Suspect]
     Active Substance: MIRTAZAPINE
     Indication: Depression
  18. MIRTAZAPINE [Suspect]
     Active Substance: MIRTAZAPINE
     Indication: Headache
  19. MIRTAZAPINE [Suspect]
     Active Substance: MIRTAZAPINE
     Indication: Dizziness
  20. MIRTAZAPINE [Suspect]
     Active Substance: MIRTAZAPINE
     Indication: Anhedonia
  21. AMISULPRIDE [Suspect]
     Active Substance: AMISULPRIDE
     Indication: Depression
     Dosage: 100 MILLIGRAM
     Route: 065
  22. AMISULPRIDE [Suspect]
     Active Substance: AMISULPRIDE
     Indication: Headache
  23. AMISULPRIDE [Suspect]
     Active Substance: AMISULPRIDE
     Indication: Dizziness
  24. AMISULPRIDE [Suspect]
     Active Substance: AMISULPRIDE
     Indication: Anhedonia
  25. AMISULPRIDE [Suspect]
     Active Substance: AMISULPRIDE
     Indication: Anxiety
  26. PIRACETAM [Suspect]
     Active Substance: PIRACETAM
     Indication: Dizziness
     Dosage: 800 MILLIGRAM
     Route: 065
  27. PIRACETAM [Suspect]
     Active Substance: PIRACETAM
     Indication: Headache
  28. PIRACETAM [Suspect]
     Active Substance: PIRACETAM
     Indication: Neck pain
  29. PIRACETAM [Suspect]
     Active Substance: PIRACETAM
     Indication: Anhedonia
  30. PIRACETAM [Suspect]
     Active Substance: PIRACETAM
     Indication: Depression
  31. PIRACETAM [Suspect]
     Active Substance: PIRACETAM
     Indication: Anxiety
  32. ALPRAZOLAM [Suspect]
     Active Substance: ALPRAZOLAM
     Indication: Anxiety
     Dosage: 1 MILLIGRAM
     Route: 065
  33. ALPRAZOLAM [Suspect]
     Active Substance: ALPRAZOLAM
     Indication: Anhedonia
  34. ALPRAZOLAM [Suspect]
     Active Substance: ALPRAZOLAM
     Indication: Headache
  35. ALPRAZOLAM [Suspect]
     Active Substance: ALPRAZOLAM
     Indication: Depression
  36. ALPRAZOLAM [Suspect]
     Active Substance: ALPRAZOLAM
     Indication: Dizziness

REACTIONS (1)
  - Drug ineffective [Recovered/Resolved]
